FAERS Safety Report 10076673 (Version 1)
Quarter: 2014Q2

REPORT INFORMATION
  Report Type: Spontaneous
  Country: US (occurrence: None)
  Receive Date: 20140411
  Receipt Date: 20140411
  Transmission Date: 20141212
  Serious: No
  Sender: FDA-Public Use
  Company Number: None

PATIENT
  Age: 65 Year
  Sex: Male
  Weight: 68.04 kg

DRUGS (2)
  1. ANDRODERM [Suspect]
     Indication: BLOOD TESTOSTERONE DECREASED
     Dosage: TWO PATCHES DAILY, ONCE DAILY, APPLIED AS MEDICATED PATCH TO SKIN
     Dates: start: 20130130, end: 20140115
  2. ANDRODERM [Suspect]
     Indication: BONE DENSITY DECREASED
     Dosage: TWO PATCHES DAILY, ONCE DAILY, APPLIED AS MEDICATED PATCH TO SKIN
     Dates: start: 20130130, end: 20140115

REACTIONS (2)
  - Drug ineffective [None]
  - Product substitution issue [None]
